FAERS Safety Report 8958723 (Version 2)
Quarter: 2013Q1

REPORT INFORMATION
  Report Type: Report from Study
  Country: AU (occurrence: AU)
  Receive Date: 20121212
  Receipt Date: 20130107
  Transmission Date: 20140127
  Serious: Yes (Other)
  Sender: FDA-Public Use
  Company Number: AU-CELGENEUS-008-C5013-12114020

PATIENT
  Age: 77 Year
  Sex: Female

DRUGS (13)
  1. CC-5013 [Suspect]
     Indication: PLASMA CELL MYELOMA
     Dosage: 25 MILLIGRAM
     Route: 048
     Dates: start: 20090626
  2. DEXAMETHASONE [Suspect]
     Indication: PLASMA CELL MYELOMA
     Dosage: 40 MILLIGRAM
     Route: 065
     Dates: start: 20090626
  3. ATORVASTATIN [Concomitant]
     Indication: HYPERCHOLESTEROLAEMIA
     Route: 065
     Dates: start: 2002
  4. ALLOPURINOL [Concomitant]
     Indication: GOUT
     Route: 065
     Dates: start: 200903
  5. RANITIDINE [Concomitant]
     Indication: GASTROOESOPHAGEAL REFLUX DISEASE
     Route: 065
     Dates: start: 200905
  6. INTAL FORTE [Concomitant]
     Indication: ASTHMA
     Route: 065
     Dates: start: 200903
  7. INTAL FORTE [Concomitant]
     Indication: PROPHYLAXIS
  8. HYDROXOCOBALAMIN [Concomitant]
     Indication: PROPHYLAXIS
     Route: 065
     Dates: start: 20090901
  9. CALCIUM CARBONATE [Concomitant]
     Indication: SUPPLEMENTATION THERAPY
     Route: 065
     Dates: start: 20090901
  10. ZOLENDRONIC ACID [Concomitant]
     Indication: PROPHYLAXIS
     Dosage: VARIABLE 3-5
     Route: 065
     Dates: start: 20090630
  11. PARACETAMOL [Concomitant]
     Indication: PAIN
     Route: 065
     Dates: start: 2000
  12. ENALAPRIL MALEATE [Concomitant]
     Indication: HYPERTENSION
     Route: 065
     Dates: start: 20101026
  13. ASPIRINE [Concomitant]
     Indication: THROMBOSIS PROPHYLAXIS
     Dosage: 100 MILLIGRAM
     Route: 065
     Dates: start: 20110113

REACTIONS (1)
  - Acute myeloid leukaemia [Not Recovered/Not Resolved]
